FAERS Safety Report 8299486 (Version 3)
Quarter: 2012Q4

REPORT INFORMATION
  Report Type: 
  Country: US (occurrence: US)
  Receive Date: 20111219
  Receipt Date: 20121112
  Transmission Date: 20130627
  Serious: Yes (Hospitalization)
  Sender: FDA-Public Use
  Company Number: US-GLAXOSMITHKLINE-A0958338A

PATIENT
  Age: 73 Year
  Sex: Male
  Weight: 84.8 kg

DRUGS (13)
  1. MELPHALAN [Suspect]
     Indication: MULTIPLE MYELOMA
     Dosage: 12MG Cyclic
     Route: 048
     Dates: start: 20110418
  2. VELCADE [Suspect]
     Indication: MULTIPLE MYELOMA
     Dosage: 1.3MGM2 Weekly
     Route: 042
     Dates: start: 20110418
  3. PREDNISONE [Suspect]
     Indication: MULTIPLE MYELOMA
     Dosage: 100MG Cyclic
     Route: 048
     Dates: start: 20110418
  4. PERIDEX [Concomitant]
     Dosage: 15ML Twice per day
     Route: 048
  5. TOPROL XL [Concomitant]
     Dosage: 25MG Per day
     Route: 048
  6. ZOFRAN [Concomitant]
     Indication: NAUSEA
     Dosage: 12MG per day
     Route: 048
  7. RENVELA [Concomitant]
     Indication: INTESTINAL OBSTRUCTION
     Dosage: 2400MG per day
     Route: 048
  8. PHENERGAN [Concomitant]
     Indication: HYPERSENSITIVITY
     Route: 048
  9. ZOVIRAX [Concomitant]
  10. AUGMENTIN [Concomitant]
  11. FLOMAX [Concomitant]
  12. HYDROMORPHONE [Concomitant]
  13. AMLODIPINE [Concomitant]

REACTIONS (15)
  - Asthenia [Recovered/Resolved]
  - Dyspnoea [Recovered/Resolved]
  - Gram stain positive [Recovered/Resolved]
  - Dyspnoea [Recovered/Resolved]
  - Chest pain [Recovered/Resolved]
  - Chest discomfort [Recovered/Resolved]
  - Malaise [Recovered/Resolved]
  - Chills [Recovered/Resolved]
  - Dysgeusia [Recovered/Resolved]
  - Orthopnoea [Recovered/Resolved]
  - Inguinal hernia [Recovered/Resolved]
  - Intestinal obstruction [Recovered/Resolved]
  - Pyrexia [Recovered/Resolved]
  - Pneumonia [Recovered/Resolved]
  - Feeling abnormal [Recovered/Resolved]
